FAERS Safety Report 7344765-8 (Version None)
Quarter: 2011Q1

REPORT INFORMATION
  Report Type: 
  Country: None (occurrence: None)
  Receive Date: 20110228
  Receipt Date: 20110224
  Transmission Date: 20110831
  Serious: Yes (Hospitalization)
  Sender: FDA-Public Use
  Company Number: SP03486

PATIENT
  Age: 47 Year
  Sex: Female

DRUGS (1)
  1. OSMOPREP [Suspect]
     Indication: BOWEL PREPARATION
     Dosage: (20 TABLETS),ORAL
     Route: 048
     Dates: start: 20110203, end: 20110203

REACTIONS (4)
  - HYPOKALAEMIA [None]
  - CONFUSIONAL STATE [None]
  - HYPONATRAEMIA [None]
  - TREMOR [None]
